FAERS Safety Report 9353318 (Version 1)
Quarter: 2013Q2

REPORT INFORMATION
  Report Type: Spontaneous
  Country: US (occurrence: None)
  Receive Date: 20130617
  Receipt Date: 20130617
  Transmission Date: 20140414
  Serious: Yes (Hospitalization)
  Sender: FDA-Public Use
  Company Number: None

PATIENT
  Age: 55 Year
  Sex: Male
  Weight: 87.5 kg

DRUGS (2)
  1. BACLOFEN [Suspect]
     Indication: MUSCLE SPASMS
     Dosage: 590 MG ONCE PO
     Route: 048
     Dates: start: 20130524, end: 20130524
  2. TRAMADOL [Suspect]
     Indication: PAIN
     Dosage: 1900 MG ONCE PO
     Route: 048
     Dates: start: 20130524, end: 20130524

REACTIONS (8)
  - Mental status changes [None]
  - Hypoventilation [None]
  - Tachycardia [None]
  - Hypotension [None]
  - Electrocardiogram QT prolonged [None]
  - Respiratory depression [None]
  - Muscle contractions involuntary [None]
  - Confusional state [None]
